FAERS Safety Report 9368759 (Version 1)
Quarter: 2013Q2

REPORT INFORMATION
  Report Type: Spontaneous
  Country: US (occurrence: US)
  Receive Date: 20130626
  Receipt Date: 20130626
  Transmission Date: 20140414
  Serious: Yes (Other)
  Sender: FDA-Public Use
  Company Number: PHHY2013US062803

PATIENT
  Age: 41 Year
  Sex: Male

DRUGS (2)
  1. IDARUBICIN [Suspect]
     Indication: ACUTE MYELOID LEUKAEMIA
  2. CYTARABINE [Suspect]
     Indication: ACUTE MYELOID LEUKAEMIA

REACTIONS (9)
  - Acute febrile neutrophilic dermatosis [Recovered/Resolved]
  - Acute myeloid leukaemia recurrent [Unknown]
  - Local swelling [Recovered/Resolved]
  - Myalgia [Recovered/Resolved]
  - Nodule [Recovered/Resolved]
  - Neutrophilic panniculitis [Recovered/Resolved]
  - White blood cell disorder [Recovered/Resolved]
  - Fat necrosis [Recovered/Resolved]
  - Granuloma [Recovered/Resolved]
